FAERS Safety Report 11944215 (Version 1)
Quarter: 2016Q1

REPORT INFORMATION
  Report Type: Report from Study
  Country: CA (occurrence: CA)
  Receive Date: 20160125
  Receipt Date: 20160125
  Transmission Date: 20160526
  Serious: Yes (Other)
  Sender: FDA-Public Use
  Company Number: CA-BEH-2015056240

PATIENT
  Age: 68 Year
  Sex: Male
  Weight: 79.9 kg

DRUGS (4)
  1. HIZENTRA [Suspect]
     Active Substance: HUMAN IMMUNOGLOBULIN G
     Indication: CHRONIC LYMPHOCYTIC LEUKAEMIA
     Route: 058
     Dates: start: 20151204
  2. HIZENTRA [Suspect]
     Active Substance: HUMAN IMMUNOGLOBULIN G
     Route: 058
     Dates: start: 20151105
  3. HIZENTRA [Suspect]
     Active Substance: HUMAN IMMUNOGLOBULIN G
     Indication: SECONDARY IMMUNODEFICIENCY
     Route: 058
     Dates: start: 20160116
  4. HIZENTRA [Suspect]
     Active Substance: HUMAN IMMUNOGLOBULIN G
     Route: 058
     Dates: start: 20151120

REACTIONS (8)
  - Influenza like illness [Recovered/Resolved]
  - Eye irritation [Recovered/Resolved]
  - Asthenopia [Recovered/Resolved]
  - Fatigue [Not Recovered/Not Resolved]
  - Somnolence [Not Recovered/Not Resolved]
  - Bronchitis [Unknown]
  - Asthenia [Not Recovered/Not Resolved]
  - Nasal discharge discolouration [Unknown]

NARRATIVE: CASE EVENT DATE: 20151123
